FAERS Safety Report 6970048-1 (Version None)
Quarter: 2010Q3

REPORT INFORMATION
  Report Type: 
  Country: None (occurrence: None)
  Receive Date: 20100908
  Receipt Date: 20100831
  Transmission Date: 20110219
  Serious: Yes (Death, Hospitalization)
  Sender: FDA-Public Use
  Company Number: IT-BRISTOL-MYERS SQUIBB COMPANY-15201445

PATIENT
  Age: 74 Year
  Sex: Male
  Weight: 50 kg

DRUGS (4)
  1. CETUXIMAB [Suspect]
     Indication: HEAD AND NECK CANCER
     Dosage: CETUXIMAB 5MG/ML RECENT INF:01JUN2010; NO OF INF:11
     Route: 042
     Dates: start: 20100308, end: 20100601
  2. CISPLATIN [Suspect]
     Indication: HEAD AND NECK CANCER
     Dosage: RECENT INF:24MAY2010; NO OF INF:4
     Route: 042
     Dates: start: 20100308, end: 20100524
  3. CILENGITIDE [Suspect]
     Indication: HEAD AND NECK CANCER
     Dosage: RECENT INF:01JUN2010; NO OF INF:11
     Route: 042
     Dates: start: 20100308, end: 20100601
  4. FLUOROURACIL [Suspect]
     Indication: HEAD AND NECK CANCER
     Dosage: CONTINUOUS INFUSION FROM DAY 1 TO DAY 4 OF CYCLE. RECENT INF:24MAY2010; NO OF INF:4
     Route: 042
     Dates: start: 20100308, end: 20100524

REACTIONS (2)
  - GENERAL PHYSICAL HEALTH DETERIORATION [None]
  - PULMONARY EMBOLISM [None]
